FAERS Safety Report 6369152-0 (Version None)
Quarter: 2009Q3

REPORT INFORMATION
  Report Type: 
  Country: None (occurrence: None)
  Receive Date: 20090918
  Receipt Date: 20090918
  Transmission Date: 20100115
  Serious: Yes (Life-Threatening, Hospitalization)
  Sender: FDA-Public Use
  Company Number: None

PATIENT
  Age: 67 Year
  Sex: Male
  Weight: 91.4 kg

DRUGS (2)
  1. RITUXIMAB 375MG/M2 GENENTECH [Suspect]
     Indication: DIFFUSE LARGE B-CELL LYMPHOMA
     Dosage: 375MG/M2 12 TOTAL DOSES INTRAVENOUS
     Route: 042
     Dates: start: 20070601, end: 20071201
  2. RITUXIMAB 375MG/M2 GENENTECH [Suspect]
     Indication: DIFFUSE LARGE B-CELL LYMPHOMA
     Dosage: 375MG/M2 12 TOTAL DOSES INTRAVENOUS
     Route: 042
     Dates: start: 20081001, end: 20090201

REACTIONS (5)
  - ASTHENIA [None]
  - DIPLOPIA [None]
  - NERVOUS SYSTEM DISORDER [None]
  - NEUROLOGICAL SYMPTOM [None]
  - PROGRESSIVE MULTIFOCAL LEUKOENCEPHALOPATHY [None]
